FAERS Safety Report 21010699 (Version 1)
Quarter: 2022Q2

REPORT INFORMATION
  Report Type: Spontaneous
  Country: US (occurrence: US)
  Receive Date: 20220627
  Receipt Date: 20220627
  Transmission Date: 20220720
  Serious: Yes (Death, Hospitalization, Other)
  Sender: FDA-Public Use
  Company Number: US-AMGEN-USASP2022106636

PATIENT

DRUGS (1)
  1. FILGRASTIM [Suspect]
     Active Substance: FILGRASTIM
     Indication: Product used for unknown indication
     Dosage: UNK
     Route: 065

REACTIONS (15)
  - Death [Fatal]
  - Adverse event [Fatal]
  - Infection [Unknown]
  - Infestation [Unknown]
  - Septic shock [Unknown]
  - Pneumonia [Unknown]
  - Pneumonia pseudomonal [Unknown]
  - Renal disorder [Unknown]
  - Urinary tract disorder [Unknown]
  - Acute kidney injury [Unknown]
  - Cardiac disorder [Unknown]
  - Atrial fibrillation [Unknown]
  - Pulseless electrical activity [Unknown]
  - Cytopenia [Unknown]
  - Hepatic enzyme abnormal [Unknown]
